FAERS Safety Report 8936911 (Version 1)
Quarter: 2012Q4

REPORT INFORMATION
  Report Type: 
  Country: ES (occurrence: ES)
  Receive Date: 20121130
  Receipt Date: 20121130
  Transmission Date: 20130627
  Serious: Yes (Hospitalization, Other)
  Sender: FDA-Public Use
  Company Number: ES-SHIRE-SPV1-2012-00508

PATIENT
  Age: 52 Year
  Sex: Female
  Weight: 61 kg

DRUGS (2)
  1. XAGRID [Suspect]
     Indication: ESSENTIAL THROMBOCYTHAEMIA
     Dosage: 0.5 mg, 3x/day:tid
     Route: 048
     Dates: start: 20111111, end: 201211
  2. ADIRO [Concomitant]
     Indication: CARDIAC DISORDER
     Dosage: 100 mg, 1x/day:qd
     Route: 048
     Dates: start: 20111111

REACTIONS (3)
  - Coronary artery occlusion [Recovered/Resolved]
  - Angina unstable [Recovered/Resolved]
  - Gastric disorder [Recovered/Resolved]
